FAERS Safety Report 7547586-6 (Version None)
Quarter: 2011Q2

REPORT INFORMATION
  Report Type: 
  Country: None (occurrence: None)
  Receive Date: 20110614
  Receipt Date: 20110606
  Transmission Date: 20111010
  Serious: Yes (Hospitalization)
  Sender: FDA-Public Use
  Company Number: US-PURDUE-USA-2010-0062076

PATIENT
  Sex: Male

DRUGS (1)
  1. OXYCONTIN [Suspect]
     Indication: PAIN
     Dosage: 480 MG, DAILY
     Dates: start: 20100101

REACTIONS (4)
  - ABDOMINAL DISTENSION [None]
  - HOSPITALISATION [None]
  - INTENTIONAL DRUG MISUSE [None]
  - INADEQUATE ANALGESIA [None]
